FAERS Safety Report 12393242 (Version 1)
Quarter: 2016Q2

REPORT INFORMATION
  Report Type: Spontaneous
  Country: US (occurrence: None)
  Receive Date: 20160520
  Receipt Date: 20160520
  Transmission Date: 20160815
  Serious: No
  Sender: FDA-Public Use
  Company Number: None

PATIENT
  Age: 76 Year
  Sex: Female

DRUGS (1)
  1. PROLIA [Suspect]
     Active Substance: DENOSUMAB
     Indication: OSTEOPOROSIS
     Dosage: 10/20/2016 ON HOLD?60MG EVERY 6 MONTHS SQ
     Route: 058
     Dates: start: 20151020

REACTIONS (2)
  - Pain [None]
  - Drug dose omission [None]

NARRATIVE: CASE EVENT DATE: 20160518
